FAERS Safety Report 10255590 (Version 3)
Quarter: 2014Q3

REPORT INFORMATION
  Report Type: Spontaneous
  Country: MX (occurrence: None)
  Receive Date: 20140620
  Receipt Date: 20140728
  Transmission Date: 20150326
  Serious: Yes (Other)
  Sender: FDA-Public Use
  Company Number: 2014MX010481

PATIENT
  Age: 16 Year
  Sex: Female
  Weight: 49.6 kg

DRUGS (3)
  1. METHOTREXATE [Concomitant]
     Active Substance: METHOTREXATE
  2. CITARABIN [Concomitant]
  3. ONICIT (PALONOSETRON HYDROCHLORIDE) INJECTION, 0.25 MG/5ML [Suspect]
     Active Substance: PALONOSETRON HYDROCHLORIDE
     Indication: PROPHYLAXIS OF NAUSEA AND VOMITING
     Route: 042
     Dates: start: 201302, end: 201302

REACTIONS (7)
  - Hyperhidrosis [None]
  - Dyspnoea [None]
  - Anxiety [None]
  - Tachycardia [None]
  - Crying [None]
  - Off label use [None]
  - Hypersensitivity [None]

NARRATIVE: CASE EVENT DATE: 20140609
